FAERS Safety Report 5719821-8 (Version None)
Quarter: 2008Q2

REPORT INFORMATION
  Report Type: 
  Country: None (occurrence: None)
  Receive Date: 20080428
  Receipt Date: 20080416
  Transmission Date: 20081010
  Serious: Yes (Hospitalization, Disabling, Other)
  Sender: FDA-Public Use
  Company Number: US-MERCK-0712USA08210

PATIENT
  Age: 36 Year
  Sex: Female
  Weight: 65 kg

DRUGS (2)
  1. FOSAMAX [Suspect]
     Indication: OSTEOPOROSIS
     Route: 048
     Dates: start: 20021101, end: 20040501
  2. REMICADE [Concomitant]
     Indication: CROHN'S DISEASE
     Route: 065
     Dates: start: 20010101

REACTIONS (45)
  - ABSCESS [None]
  - ABSCESS ORAL [None]
  - ADRENAL INSUFFICIENCY [None]
  - ANAEMIA [None]
  - BRADYCARDIA [None]
  - CATHETER SEPSIS [None]
  - CLOSTRIDIUM DIFFICILE COLITIS [None]
  - CONDITION AGGRAVATED [None]
  - CROHN'S DISEASE [None]
  - DENTAL CARIES [None]
  - DEPRESSION [None]
  - FISTULA DISCHARGE [None]
  - GINGIVAL DISORDER [None]
  - GINGIVAL INFECTION [None]
  - GINGIVITIS ULCERATIVE [None]
  - HYPERKALAEMIA [None]
  - ILEAL STENOSIS [None]
  - IMPAIRED HEALING [None]
  - INFECTION [None]
  - IRON DEFICIENCY ANAEMIA [None]
  - JUGULAR VEIN THROMBOSIS [None]
  - LEUKAEMIA [None]
  - LYMPHADENOPATHY [None]
  - METABOLIC ACIDOSIS [None]
  - NAUSEA [None]
  - OESOPHAGITIS [None]
  - ORAL DISORDER [None]
  - ORAL HERPES [None]
  - ORAL INFECTION [None]
  - OSTEONECROSIS [None]
  - PAIN [None]
  - PELVIC ABSCESS [None]
  - PHARYNGEAL ABSCESS [None]
  - POSTOPERATIVE WOUND INFECTION [None]
  - SEPSIS [None]
  - SIALOADENITIS [None]
  - SMALL INTESTINAL OBSTRUCTION [None]
  - SOFT TISSUE INFLAMMATION [None]
  - STAPHYLOCOCCAL INFECTION [None]
  - STOMATITIS [None]
  - SUBCLAVIAN VEIN THROMBOSIS [None]
  - SWELLING [None]
  - TACHYCARDIA [None]
  - TRISMUS [None]
  - WEIGHT DECREASED [None]
